FAERS Safety Report 7509299-6 (Version None)
Quarter: 2011Q2

REPORT INFORMATION
  Report Type: 
  Country: None (occurrence: None)
  Receive Date: 20110527
  Receipt Date: 20110523
  Transmission Date: 20111010
  Serious: Yes (Hospitalization, Other)
  Sender: FDA-Public Use
  Company Number: US-ABBOTT-11P-163-0728249-00

PATIENT
  Age: 30 Year
  Sex: Female
  Weight: 78.088 kg

DRUGS (4)
  1. DEPAKOTE [Suspect]
     Indication: BIPOLAR DISORDER
     Dates: start: 20000101
  2. UNKNOWN MEDICATIONS [Concomitant]
     Indication: BIPOLAR DISORDER
     Dates: start: 19980101
  3. NEURONTIN [Suspect]
     Indication: FIBROMYALGIA
     Route: 048
     Dates: start: 20000101
  4. MERCAPTOPURINE [Concomitant]
     Indication: IMMUNOSUPPRESSANT DRUG THERAPY
     Dates: start: 19941006

REACTIONS (4)
  - CROHN'S DISEASE [None]
  - WHITE BLOOD CELL COUNT INCREASED [None]
  - DRUG LEVEL INCREASED [None]
  - DRUG INEFFECTIVE [None]
